FAERS Safety Report 5367663-8 (Version None)
Quarter: 2007Q2

REPORT INFORMATION
  Report Type: 
  Country: None (occurrence: None)
  Receive Date: 20070622
  Receipt Date: 20070216
  Transmission Date: 20071010
  Serious: No
  Sender: FDA-Public Use
  Company Number: US-ASTRAZENECA-2007UW03141

PATIENT
  Age: 44 Year
  Sex: Male
  Weight: 70.3 kg

DRUGS (3)
  1. PULMICORT TH [Suspect]
     Indication: ASTHMA
     Route: 055
     Dates: start: 20060201
  2. ALBUTEROL [Concomitant]
     Dosage: INTERMITTENTLY
  3. PREDNISONE TAB [Concomitant]

REACTIONS (2)
  - DRUG INEFFECTIVE [None]
  - DYSPHONIA [None]
